FAERS Safety Report 12322554 (Version 1)
Quarter: 2016Q2

REPORT INFORMATION
  Report Type: Spontaneous
  Country: US (occurrence: US)
  Receive Date: 20160502
  Receipt Date: 20160502
  Transmission Date: 20160815
  Serious: Yes (Other)
  Sender: FDA-Public Use
  Company Number: ADR-2015-01613

PATIENT
  Age: 47 Year
  Sex: Female

DRUGS (1)
  1. LIORESAL [Suspect]
     Active Substance: BACLOFEN
     Dosage: 43.9MCG/DAY
     Route: 037

REACTIONS (5)
  - Nausea [Unknown]
  - Pyrexia [Unknown]
  - Headache [Unknown]
  - Post procedural infection [Unknown]
  - Medical device site infection [Unknown]
